FAERS Safety Report 12541434 (Version 1)
Quarter: 2016Q3

REPORT INFORMATION
  Report Type: Spontaneous
  Country: US (occurrence: US)
  Receive Date: 20160708
  Receipt Date: 20160708
  Transmission Date: 20161109
  Serious: Yes (Hospitalization, Other)
  Sender: FDA-Public Use
  Company Number: US-TEVA-675082USA

PATIENT
  Age: 45 Year
  Sex: Female

DRUGS (1)
  1. DIPHENHYDRAMINE. [Suspect]
     Active Substance: DIPHENHYDRAMINE
     Route: 065

REACTIONS (1)
  - Adrenocortical insufficiency acute [Unknown]
